FAERS Safety Report 13873038 (Version 5)
Quarter: 2018Q2

REPORT INFORMATION
  Report Type: Report from Study
  Country: US (occurrence: US)
  Receive Date: 20170816
  Receipt Date: 20180611
  Transmission Date: 20180711
  Serious: Yes (Hospitalization)
  Sender: FDA-Public Use
  Company Number: US-EISAI MEDICAL RESEARCH-EC-2017-030238

PATIENT
  Age: 66 Year
  Sex: Female
  Weight: 77 kg

DRUGS (9)
  1. MULTI VITAMIN [Concomitant]
     Active Substance: VITAMINS
     Route: 048
     Dates: start: 2008
  2. METROIDAZOLE CREAM [Concomitant]
     Route: 061
     Dates: start: 20150828
  3. NITROGLYCERINE [Concomitant]
     Active Substance: NITROGLYCERIN
     Route: 060
     Dates: start: 200805
  4. PLAVIX [Concomitant]
     Active Substance: CLOPIDOGREL BISULFATE
     Route: 048
     Dates: start: 200805
  5. ASPIRIN. [Concomitant]
     Active Substance: ASPIRIN
     Route: 048
     Dates: start: 200805
  6. FLUTICASONE SPRAY [Concomitant]
     Active Substance: FLUTICASONE
     Route: 045
     Dates: start: 20150428
  7. ROUVASTATIN [Concomitant]
     Active Substance: ROSUVASTATIN
     Route: 048
     Dates: start: 2008
  8. LORCASERIN [Suspect]
     Active Substance: LORCASERIN HYDROCHLORIDE
     Indication: WEIGHT CONTROL
     Route: 048
     Dates: start: 20140915, end: 20170809
  9. TRETINOIN. [Concomitant]
     Active Substance: TRETINOIN
     Route: 061
     Dates: start: 20150924

REACTIONS (1)
  - Hypoglycaemia [Recovered/Resolved]

NARRATIVE: CASE EVENT DATE: 20170809
